FAERS Safety Report 24079920 (Version 1)
Quarter: 2024Q3

REPORT INFORMATION
  Report Type: Spontaneous
  Country: DK (occurrence: DK)
  Receive Date: 20240711
  Receipt Date: 20240711
  Transmission Date: 20241017
  Serious: Yes (Death, Other)
  Sender: TEVA
  Company Number: None

PATIENT
  Age: 46 Year
  Sex: Male

DRUGS (1)
  1. DISULFIRAM [Suspect]
     Active Substance: DISULFIRAM
     Indication: Alcoholism
     Dosage: DOSAGE NOT REPORTED
     Route: 048
     Dates: start: 20230908

REACTIONS (4)
  - Alcohol poisoning [Fatal]
  - Cardiac arrest [Fatal]
  - Circulatory collapse [Fatal]
  - Cardiac death [Fatal]

NARRATIVE: CASE EVENT DATE: 20230909
